FAERS Safety Report 24140972 (Version 1)
Quarter: 2024Q3

REPORT INFORMATION
  Report Type: Spontaneous
  Country: ES (occurrence: ES)
  Receive Date: 20240726
  Receipt Date: 20240726
  Transmission Date: 20241016
  Serious: Yes (Other)
  Sender: UNKNOWN
  Company Number: ES-KOANAAP-SML-ES-2024-00754

PATIENT
  Age: 34 Year
  Sex: Male

DRUGS (2)
  1. GEMCITABINE [Suspect]
     Active Substance: GEMCITABINE
     Indication: Desmoplastic small round cell tumour
     Dosage: DAYS 1 AND 8
     Route: 065
     Dates: start: 202107, end: 202112
  2. DOCETAXEL [Suspect]
     Active Substance: DOCETAXEL\DOCETAXEL ANHYDROUS
     Indication: Desmoplastic small round cell tumour

REACTIONS (4)
  - Haematotoxicity [Unknown]
  - Disease progression [Unknown]
  - Drug ineffective [Unknown]
  - Therapy partial responder [Unknown]
